FAERS Safety Report 9083918 (Version 3)
Quarter: 2014Q2

REPORT INFORMATION
  Report Type: Spontaneous
  Country: US (occurrence: US)
  Receive Date: 20130130
  Receipt Date: 20140612
  Transmission Date: 20141212
  Serious: Yes (Hospitalization)
  Sender: FDA-Public Use
  Company Number: US-PFIZER INC-2013037661

PATIENT
  Age: 56 Year
  Sex: Female
  Weight: 86.17 kg

DRUGS (4)
  1. LYRICA [Suspect]
     Indication: LIMB DISCOMFORT
     Dosage: 150 MG, 2X/DAY
  2. LYRICA [Suspect]
     Indication: MUSCULOSKELETAL DISCOMFORT
  3. NORVASC [Concomitant]
     Indication: HYPERTENSION
     Dosage: UNK,2X/DAY
  4. TOPROL XL [Concomitant]
     Indication: HYPERTENSION
     Dosage: UNK,DAILY

REACTIONS (3)
  - Pain [Unknown]
  - Dehydration [Unknown]
  - Incoherent [Unknown]
